FAERS Safety Report 8267256-9 (Version None)
Quarter: 2012Q2

REPORT INFORMATION
  Report Type: 
  Country: None (occurrence: None)
  Receive Date: 20120404
  Receipt Date: 20120321
  Transmission Date: 20120825
  Serious: Yes (Other)
  Sender: FDA-Public Use
  Company Number: JP-2012-13598

PATIENT
  Age: 69 Year
  Sex: Male

DRUGS (2)
  1. PLETAL [Suspect]
     Dosage: , ORAL
     Route: 048
  2. ASPIRIN [Suspect]
     Dosage: , ORAL
     Route: 048

REACTIONS (2)
  - HAEMOPTYSIS [None]
  - NEOVASCULARISATION [None]
